FAERS Safety Report 12526379 (Version 2)
Quarter: 2016Q3

REPORT INFORMATION
  Report Type: Spontaneous
  Country: US (occurrence: US)
  Receive Date: 20160705
  Receipt Date: 20160902
  Transmission Date: 20161109
  Serious: No
  Sender: FDA-Public Use
  Company Number: US-PFIZER INC-2016287412

PATIENT
  Age: 6 Decade
  Sex: Female

DRUGS (4)
  1. WATER BACTERIOSTATIC [Suspect]
     Active Substance: WATER
     Dosage: UNK
  2. VITRASE [Suspect]
     Active Substance: HYALURONIDASE, OVINE
     Dosage: UNK
  3. WATER BACTERIOSTATIC [Suspect]
     Active Substance: WATER
     Dosage: UNK
  4. WATER BACTERIOSTATIC [Suspect]
     Active Substance: WATER
     Dosage: UNK

REACTIONS (3)
  - Swelling face [Unknown]
  - Reduced facial expression [Unknown]
  - Erythema [Unknown]
